FAERS Safety Report 23796161 (Version 1)
Quarter: 2024Q2

REPORT INFORMATION
  Report Type: Report from Study
  Country: US (occurrence: US)
  Receive Date: 20240429
  Receipt Date: 20240429
  Transmission Date: 20240716
  Serious: No
  Sender: FDA-Public Use
  Company Number: US-ACADIA PHARMACEUTICALS INC.-ACA-2024-PIM-001676

PATIENT
  Sex: Male

DRUGS (9)
  1. NUPLAZID [Suspect]
     Active Substance: PIMAVANSERIN TARTRATE
     Indication: Parkinson^s disease
     Dosage: 34 MILLIGRAM, QD
     Route: 048
  2. NUPLAZID [Suspect]
     Active Substance: PIMAVANSERIN TARTRATE
     Indication: Hallucination
  3. NUPLAZID [Suspect]
     Active Substance: PIMAVANSERIN TARTRATE
     Indication: Delusion
  4. ATORVASTATIN [Concomitant]
     Active Substance: ATORVASTATIN
     Dosage: 80 MILLIGRAM
  5. CARBIDOPA\LEVODOPA [Concomitant]
     Active Substance: CARBIDOPA\LEVODOPA
     Dosage: 25-250MG
  6. CARVEDILOL [Concomitant]
     Active Substance: CARVEDILOL
     Dosage: 25 MILLIGRAM
  7. CLONAZEPAM [Concomitant]
     Active Substance: CLONAZEPAM
     Dosage: 2 MILLIGRAM
  8. FLUOXETINE HYDROCHLORIDE [Concomitant]
     Active Substance: FLUOXETINE HYDROCHLORIDE
     Dosage: 60 MILLIGRAM
  9. HYDROXYZINE [Concomitant]
     Active Substance: HYDROXYZINE HYDROCHLORIDE
     Dosage: 50 MILLIGRAM

REACTIONS (9)
  - Delusion [Unknown]
  - Tremor [Unknown]
  - Decreased appetite [Unknown]
  - Back pain [Unknown]
  - Depressed mood [Unknown]
  - Product dose omission in error [Unknown]
  - Hallucinations, mixed [Unknown]
  - Gait disturbance [Unknown]
  - Somnolence [Unknown]
